FAERS Safety Report 6999259-6 (Version None)
Quarter: 2010Q3

REPORT INFORMATION
  Report Type: 
  Country: None (occurrence: None)
  Receive Date: 20100920
  Receipt Date: 20100114
  Transmission Date: 20110219
  Serious: No
  Sender: FDA-Public Use
  Company Number: US-ASTRAZENECA-2010SE01984

PATIENT
  Sex: Female
  Weight: 70.3 kg

DRUGS (2)
  1. SEROQUEL XR [Suspect]
     Route: 048
  2. CLONOPIN [Concomitant]

REACTIONS (3)
  - DRUG DOSE OMISSION [None]
  - TREMOR [None]
  - WEIGHT INCREASED [None]
